FAERS Safety Report 8620469-6 (Version None)
Quarter: 2012Q3

REPORT INFORMATION
  Report Type: 
  Country: None (occurrence: None)
  Receive Date: 20120824
  Receipt Date: 20120817
  Transmission Date: 20120928
  Serious: Yes (Hospitalization, Other)
  Sender: FDA-Public Use
  Company Number: GB-B.I. PHARMACEUTICALS,INC./RIDGEFIELD-2012-UK-01092UK

PATIENT
  Age: 72 Year
  Sex: Female

DRUGS (15)
  1. CITALOPRAM HYDROBROMIDE [Concomitant]
  2. DIGOXIN [Concomitant]
  3. OXYCODONE HCL [Concomitant]
  4. PENICILLAMINE [Concomitant]
  5. AMITRIPTYLINE HYDROCHLORIDE [Concomitant]
  6. IBANDRONIC ACID [Concomitant]
  7. ADCAL-D3 [Concomitant]
  8. LAXIDO [Concomitant]
  9. OMEPRAZOLE [Concomitant]
  10. ACETAMINOPHEN [Concomitant]
  11. PRADAXA [Suspect]
     Indication: ATRIAL FIBRILLATION
     Dosage: 300 MG
     Route: 048
     Dates: start: 20120514
  12. FUROSEMIDE [Concomitant]
  13. OXYCONTIN [Concomitant]
  14. TEMAZEPAM [Concomitant]
  15. SENNA [Concomitant]

REACTIONS (4)
  - MONARTHRITIS [None]
  - INFLAMMATION [None]
  - SWELLING [None]
  - ARTHRALGIA [None]
